FAERS Safety Report 12106059 (Version 3)
Quarter: 2016Q1

REPORT INFORMATION
  Report Type: Spontaneous
  Country: US (occurrence: US)
  Receive Date: 20160223
  Receipt Date: 20160301
  Transmission Date: 20160526
  Serious: Yes (Disabling, Other)
  Sender: FDA-Public Use
  Company Number: US-PFIZER INC-2016002565

PATIENT
  Age: 62 Year
  Sex: Female

DRUGS (2)
  1. XELJANZ [Suspect]
     Active Substance: TOFACITINIB CITRATE
     Dosage: 5 MG, 2X/DAY
     Route: 048
     Dates: start: 201601
  2. XELJANZ [Suspect]
     Active Substance: TOFACITINIB CITRATE
     Indication: RHEUMATOID ARTHRITIS
     Dosage: 5 MG, 2X/DAY
     Route: 048
     Dates: end: 20151215

REACTIONS (6)
  - Proctalgia [Unknown]
  - Nasal congestion [Unknown]
  - Cataract [Unknown]
  - Cough [Unknown]
  - Herpes simplex [Unknown]
  - Chest pain [Unknown]

NARRATIVE: CASE EVENT DATE: 2015
